FAERS Safety Report 6858273-1 (Version None)
Quarter: 2010Q3

REPORT INFORMATION
  Report Type: 
  Country: None (occurrence: None)
  Receive Date: 20100719
  Receipt Date: 20080308
  Transmission Date: 20110219
  Serious: No
  Sender: FDA-Public Use
  Company Number: US-PFIZER INC-2008012340

PATIENT
  Sex: Male
  Weight: 77.1 kg

DRUGS (4)
  1. CHANTIX [Suspect]
     Indication: ALCOHOLISM
     Dates: start: 20070401, end: 20070601
  2. TRUVADA [Concomitant]
  3. REYATAZ [Concomitant]
  4. ALL OTHER THERAPEUTIC PRODUCTS [Concomitant]

REACTIONS (2)
  - EMOTIONAL DISORDER [None]
  - OFF LABEL USE [None]
